FAERS Safety Report 8500377-1 (Version None)
Quarter: 2012Q3

REPORT INFORMATION
  Report Type: 
  Country: None (occurrence: None)
  Receive Date: 20120705
  Receipt Date: 20120705
  Transmission Date: 20120928
  Serious: Yes (Hospitalization)
  Sender: FDA-Public Use
  Company Number: None

PATIENT

DRUGS (1)
  1. CISPLATIN [Suspect]
     Dosage: 170 MG

REACTIONS (4)
  - ASTHENIA [None]
  - MUCOSAL INFLAMMATION [None]
  - DYSPHAGIA [None]
  - OROPHARYNGEAL PAIN [None]
